FAERS Safety Report 5131982-0 (Version None)
Quarter: 2006Q4

REPORT INFORMATION
  Report Type: 
  Country: None (occurrence: None)
  Receive Date: 20061017
  Receipt Date: 20061004
  Transmission Date: 20070319
  Serious: Yes (Hospitalization, Other)
  Sender: FDA-Public Use
  Company Number: 2006BI014239

PATIENT
  Age: 44 Year
  Sex: Female

DRUGS (1)
  1. NATALIZUMAB [Suspect]
     Indication: MULTIPLE SCLEROSIS
     Dosage: 300 MG; QM; IV
     Route: 042
     Dates: start: 20061004, end: 20061004

REACTIONS (8)
  - ANAPHYLACTIC SHOCK [None]
  - ANXIETY [None]
  - FOAMING AT MOUTH [None]
  - INFUSION RELATED REACTION [None]
  - OXYGEN SATURATION DECREASED [None]
  - PSYCHOTIC DISORDER [None]
  - PULMONARY OEDEMA [None]
  - WHEEZING [None]
